FAERS Safety Report 4518723-2 (Version None)
Quarter: 2004Q4

REPORT INFORMATION
  Report Type: 
  Country: None (occurrence: None)
  Receive Date: 20041201
  Receipt Date: 20041118
  Transmission Date: 20050328
  Serious: Yes (Hospitalization)
  Sender: FDA-Public Use
  Company Number: 210646

PATIENT
  Age: 51 Year
  Sex: Female
  Weight: 85.5 kg

DRUGS (1)
  1. AVASTIN [Suspect]
     Indication: COLORECTAL CANCER METASTATIC
     Dosage: 5 MG/KG, Q2W, INTRAVENOUS
     Route: 042
     Dates: start: 20040824

REACTIONS (12)
  - CEREBRAL ISCHAEMIA [None]
  - CONFUSIONAL STATE [None]
  - CONTUSION [None]
  - CONVULSION [None]
  - FEELING ABNORMAL [None]
  - HYPOCALCAEMIA [None]
  - LOSS OF CONSCIOUSNESS [None]
  - METABOLIC DISORDER [None]
  - MICROANGIOPATHY [None]
  - MUSCULOSKELETAL STIFFNESS [None]
  - SALIVARY HYPERSECRETION [None]
  - TONGUE INJURY [None]
